FAERS Safety Report 24394516 (Version 1)
Quarter: 2024Q4

REPORT INFORMATION
  Report Type: Spontaneous
  Country: TR (occurrence: TR)
  Receive Date: 20241004
  Receipt Date: 20241004
  Transmission Date: 20250114
  Serious: Yes (Hospitalization, Other)
  Sender: NOVO NORDISK
  Company Number: TR-NOVOPROD-1290867

PATIENT
  Age: 712 Month
  Sex: Male
  Weight: 90 kg

DRUGS (2)
  1. INSULIN ASPART\INSULIN DEGLUDEC [Suspect]
     Active Substance: INSULIN ASPART\INSULIN DEGLUDEC
     Dosage: ADJUSTED EACH DOSE TO 30 IU
  2. INSULIN ASPART\INSULIN DEGLUDEC [Suspect]
     Active Substance: INSULIN ASPART\INSULIN DEGLUDEC
     Indication: Diabetes mellitus
     Dosage: 50 IU, BID (ADMINISTERING INSULIN DEPEND ON HIS MEALS NUMBERS A DAY)

REACTIONS (1)
  - Intervertebral disc operation [Unknown]
